FAERS Safety Report 18910435 (Version 2)
Quarter: 2021Q1

REPORT INFORMATION
  Report Type: Spontaneous
  Country: CR (occurrence: CR)
  Receive Date: 20210218
  Receipt Date: 20210324
  Transmission Date: 20210420
  Serious: Yes (Other)
  Sender: FDA-Public Use
  Company Number: CR-ASTRAZENECA-2021A060354

PATIENT
  Sex: Male
  Weight: 63 kg

DRUGS (3)
  1. CARBOPLATINUM [Concomitant]
     Active Substance: CARBOPLATIN
     Dates: start: 20200604
  2. PACLITAXEL. [Concomitant]
     Active Substance: PACLITAXEL
     Dates: start: 20200604
  3. IMFINZI [Suspect]
     Active Substance: DURVALUMAB
     Indication: LUNG NEOPLASM MALIGNANT
     Route: 042
     Dates: start: 20201112, end: 20210212

REACTIONS (1)
  - Malignant neoplasm progression [Unknown]
